FAERS Safety Report 19503613 (Version 7)
Quarter: 2022Q4

REPORT INFORMATION
  Report Type: Spontaneous
  Country: DE (occurrence: DE)
  Receive Date: 20210707
  Receipt Date: 20221217
  Transmission Date: 20230112
  Serious: Yes (Hospitalization, Other)
  Sender: FDA-Public Use
  Company Number: DE-JNJFOC-20190608550

PATIENT
  Sex: Male

DRUGS (12)
  1. METHOTREXATE [Suspect]
     Active Substance: METHOTREXATE
     Indication: Psoriatic arthropathy
     Dosage: 7.5 MG
     Route: 065
  2. METHOTREXATE [Suspect]
     Active Substance: METHOTREXATE
     Dosage: 20 MG
     Route: 065
     Dates: start: 20170401, end: 20190510
  3. METHOTREXATE [Suspect]
     Active Substance: METHOTREXATE
     Dosage: 22.5 MG
     Route: 065
     Dates: start: 20170401
  4. METHOTREXATE [Suspect]
     Active Substance: METHOTREXATE
     Dosage: 10 MG
     Route: 065
     Dates: start: 20190816
  5. METHOTREXATE [Suspect]
     Active Substance: METHOTREXATE
     Dosage: 7.5 MG
     Route: 058
     Dates: start: 20200707
  6. METHOTREXATE [Suspect]
     Active Substance: METHOTREXATE
     Dosage: 10 MG
     Route: 058
     Dates: start: 20210616, end: 20210915
  7. METHOTREXATE [Suspect]
     Active Substance: METHOTREXATE
     Dosage: 7.5 MG
     Route: 058
     Dates: start: 20210915
  8. SIMPONI [Suspect]
     Active Substance: GOLIMUMAB
     Indication: Psoriatic arthropathy
     Dosage: 50 MG, Q4W
     Route: 058
     Dates: start: 20180320, end: 20210215
  9. SIMPONI [Suspect]
     Active Substance: GOLIMUMAB
     Dosage: 50 MG, Q4W
     Route: 058
     Dates: start: 20210415, end: 20211210
  10. SIMPONI [Suspect]
     Active Substance: GOLIMUMAB
     Dosage: 50 MG, Q4W
     Route: 058
     Dates: start: 20220315
  11. SIMPONI [Suspect]
     Active Substance: GOLIMUMAB
     Dosage: UNK
     Route: 065
  12. NAPROXEN [Concomitant]
     Active Substance: NAPROXEN
     Indication: Psoriatic arthropathy
     Dosage: 500 MG
     Route: 065
     Dates: start: 20180214, end: 20180430

REACTIONS (14)
  - Sciatica [Unknown]
  - Spinal osteoarthritis [Recovered/Resolved]
  - Osteoarthritis [Unknown]
  - Osteoarthritis [Recovered/Resolved]
  - Renal failure [Unknown]
  - Thrombocytopenia [Unknown]
  - Influenza like illness [Unknown]
  - Dyspepsia [Unknown]
  - Diabetic neuropathy [Unknown]
  - Eye pain [Unknown]
  - Gastrointestinal infection [Unknown]
  - Transaminases increased [Unknown]
  - Oral herpes [Unknown]
  - Diarrhoea [Unknown]

NARRATIVE: CASE EVENT DATE: 20190131
